FAERS Safety Report 4672936-8 (Version None)
Quarter: 2005Q2

REPORT INFORMATION
  Report Type: 
  Country: None (occurrence: None)
  Receive Date: 20050523
  Receipt Date: 20050509
  Transmission Date: 20051028
  Serious: Yes (Death, Hospitalization)
  Sender: FDA-Public Use
  Company Number: 0500060EN0020P

PATIENT
  Age: 1 Year
  Sex: Female

DRUGS (6)
  1. ONCASPAR [Suspect]
     Indication: ACUTE LYMPHOCYTIC LEUKAEMIA
     Dosage: 1050 IU IM
     Route: 030
     Dates: start: 20011225, end: 20011225
  2. VINCRISTINE [Suspect]
     Indication: ACUTE LYMPHOCYTIC LEUKAEMIA
     Dosage: 0.65 MG Q7DAY
     Dates: start: 20011222, end: 20020111
  3. DEXAMETHASONE [Suspect]
     Indication: ACUTE LYMPHOCYTIC LEUKAEMIA
     Dosage: 2.5 MG QD
     Dates: start: 20011222, end: 20020111
  4. CYTARABINE [Suspect]
     Indication: ACUTE LYMPHOCYTIC LEUKAEMIA
     Dosage: 30 MG IT
     Route: 038
     Dates: start: 20011221, end: 20011221
  5. METHOTREXATE [Suspect]
     Indication: ACUTE LYMPHOCYTIC LEUKAEMIA
     Dosage: 8 MG IT Q7DAYS
     Route: 038
     Dates: start: 20011228, end: 20020111
  6. DAUNOMYCIN [Suspect]
     Indication: ACUTE LYMPHOCYTIC LEUKAEMIA
     Dosage: 19 MG IV QD
     Route: 042
     Dates: start: 20020104, end: 20020105

REACTIONS (5)
  - APNOEA [None]
  - ASPIRATION [None]
  - LETHARGY [None]
  - LOSS OF CONSCIOUSNESS [None]
  - NEUTROPENIA [None]
